FAERS Safety Report 4876925-X (Version None)
Quarter: 2005Q4

REPORT INFORMATION
  Report Type: 
  Country: None (occurrence: None)
  Receive Date: 20051206
  Receipt Date: 20050801
  Transmission Date: 20060501
  Serious: No
  Sender: FDA-Public Use
  Company Number: USA0507103888

PATIENT
  Age: 61 Year
  Sex: Female

DRUGS (1)
  1. CYMBALTA [Suspect]
     Indication: PAIN IN EXTREMITY
     Dosage: 60 MG AT THE BEDTIME
     Dates: start: 20050721, end: 20050726

REACTIONS (5)
  - HEADACHE [None]
  - INSOMNIA [None]
  - MIGRAINE [None]
  - PARAESTHESIA [None]
  - VOMITING [None]
